FAERS Safety Report 4632154-6 (Version None)
Quarter: 2005Q2

REPORT INFORMATION
  Report Type: 
  Country: None (occurrence: None)
  Receive Date: 20050401
  Receipt Date: 20040421
  Transmission Date: 20051028
  Serious: Yes (Congenital Anomaly)
  Sender: FDA-Public Use
  Company Number: 04P-163-0260147-00

PATIENT
  Age: 19 Week

DRUGS (2)
  1. DEPAKOTE [Suspect]
     Indication: DRUG EXPOSURE DURING PREGNANCY
  2. LAMOTRIGINE [Suspect]
     Indication: DRUG EXPOSURE DURING PREGNANCY
     Dosage: 100 MG, 2 IN 1 D; ORAL
     Route: 048
     Dates: start: 20030711

REACTIONS (6)
  - ARNOLD-CHIARI MALFORMATION [None]
  - BRAIN HERNIATION [None]
  - ENCEPHALOCELE [None]
  - MICROCEPHALY [None]
  - RETROGNATHIA [None]
  - SKULL MALFORMATION [None]
